FAERS Safety Report 15715807 (Version 1)
Quarter: 2018Q4

REPORT INFORMATION
  Report Type: Spontaneous
  Country: US (occurrence: US)
  Receive Date: 20181212
  Receipt Date: 20181212
  Transmission Date: 20190205
  Serious: Yes (Other)
  Sender: FDA-Public Use
  Company Number: US-ABBVIE-18K-163-2574230-00

PATIENT
  Age: 58 Year
  Sex: Female

DRUGS (5)
  1. TALTZ [Concomitant]
     Active Substance: IXEKIZUMAB
     Indication: PSORIASIS
  2. FLUOCINOLONE [Concomitant]
     Active Substance: FLUOCINOLONE
     Indication: PRODUCT USED FOR UNKNOWN INDICATION
  3. CLOBETASOL [Concomitant]
     Active Substance: CLOBETASOL
     Indication: PRODUCT USED FOR UNKNOWN INDICATION
  4. HUMIRA [Suspect]
     Active Substance: ADALIMUMAB
     Indication: PSORIASIS
     Route: 058
     Dates: start: 20171025, end: 20181009
  5. CALCIPOTRIENE. [Concomitant]
     Active Substance: CALCIPOTRIENE
     Indication: PSORIASIS

REACTIONS (4)
  - Antinuclear antibody positive [Recovered/Resolved]
  - Lupus-like syndrome [Recovering/Resolving]
  - Mononucleosis heterophile test positive [Recovering/Resolving]
  - Histone antibody positive [Recovering/Resolving]

NARRATIVE: CASE EVENT DATE: 20181010
